FAERS Safety Report 17060097 (Version 1)
Quarter: 2019Q4

REPORT INFORMATION
  Report Type: Spontaneous
  Country: US (occurrence: US)
  Receive Date: 20191121
  Receipt Date: 20191121
  Transmission Date: 20200122
  Serious: No
  Sender: FDA-Public Use
  Company Number: US-NOVOPROD-685659

PATIENT
  Age: 11 Year
  Sex: Female

DRUGS (1)
  1. NOVOLOG [Suspect]
     Active Substance: INSULIN ASPART
     Indication: TYPE 1 DIABETES MELLITUS
     Dosage: 34 UNITS PER DAY TO 80 UNITS PER DAY IN PAST CALENDAR YEAR (1.2 UNITS OF INSULIN PER KG PER DAY)
     Route: 058

REACTIONS (4)
  - Glycosylated haemoglobin increased [Unknown]
  - Hyperglycaemia [Unknown]
  - Drug ineffective [Unknown]
  - Insulin resistance [Unknown]
